FAERS Safety Report 11168111 (Version 2)
Quarter: 2015Q2

REPORT INFORMATION
  Report Type: Spontaneous
  Country: IE (occurrence: IE)
  Receive Date: 20150605
  Receipt Date: 20150615
  Transmission Date: 20150821
  Serious: Yes (Death)
  Sender: FDA-Public Use
  Company Number: IE-TEVA-567745ISR

PATIENT
  Sex: Male

DRUGS (13)
  1. COPAXONE [Suspect]
     Active Substance: GLATIRAMER ACETATE
     Dosage: 20 MILLIGRAM/MILLILITERS DAILY; COPAXONE 20MG/ML NO LONGER ADMINISTERED
     Route: 058
     Dates: start: 20110727, end: 201406
  2. SODIUM VALPORATE [Concomitant]
  3. FLURAZEPAM HYDROCHLORIDE. [Concomitant]
     Active Substance: FLURAZEPAM HYDROCHLORIDE
  4. THYROXINE [Concomitant]
     Active Substance: LEVOTHYROXINE
  5. QUETIAPINE [Concomitant]
     Active Substance: QUETIAPINE
  6. LACTULOSE. [Concomitant]
     Active Substance: LACTULOSE
  7. CELEVAC 500MG TABLETS [Concomitant]
  8. ESCITALOPRAM [Concomitant]
     Active Substance: ESCITALOPRAM OXALATE
  9. ESOMEPRAZOLE [Concomitant]
     Active Substance: ESOMEPRAZOLE
  10. MOVICOL [Concomitant]
     Active Substance: POLYETHYLENE GLYCOL 3350\POTASSIUM CHLORIDE\SODIUM BICARBONATE\SODIUM CHLORIDE
  11. TAMSULOSIN [Concomitant]
     Active Substance: TAMSULOSIN
  12. HALOPERIDOL. [Concomitant]
     Active Substance: HALOPERIDOL
  13. PARACETAMOL [Concomitant]
     Active Substance: ACETAMINOPHEN

REACTIONS (1)
  - Death [Fatal]
